FAERS Safety Report 6152776-3 (Version None)
Quarter: 2009Q2

REPORT INFORMATION
  Report Type: 
  Country: None (occurrence: None)
  Receive Date: 20090413
  Receipt Date: 20090330
  Transmission Date: 20091009
  Serious: Yes (Hospitalization)
  Sender: FDA-Public Use
  Company Number: GB-GENENTECH-280641

PATIENT
  Age: 82 Year
  Sex: Female

DRUGS (4)
  1. RITUXIMAB [Suspect]
     Indication: TEMPORAL ARTERITIS
     Dosage: 1 G, SINGLE
  2. CYCLOPHOSPHAMIDE [Suspect]
     Indication: TEMPORAL ARTERITIS
     Dosage: 500 MG, UNK
     Route: 042
  3. MESNA [Suspect]
     Indication: TEMPORAL ARTERITIS
  4. METHYLPREDNISOLONE 4MG TAB [Suspect]
     Indication: DRUG USE FOR UNKNOWN INDICATION
     Dosage: 100 MG, UNK
     Route: 042

REACTIONS (1)
  - LUNG CONSOLIDATION [None]
